FAERS Safety Report 13615394 (Version 2)
Quarter: 2017Q3

REPORT INFORMATION
  Report Type: Spontaneous
  Country: US (occurrence: US)
  Receive Date: 20170606
  Receipt Date: 20170705
  Transmission Date: 20171127
  Serious: No
  Sender: FDA-Public Use
  Company Number: US-PFIZER INC-2017242399

PATIENT
  Age: 73 Year
  Sex: Female
  Weight: 89.8 kg

DRUGS (1)
  1. IBRANCE [Suspect]
     Active Substance: PALBOCICLIB
     Indication: BREAST CANCER METASTATIC
     Dosage: 125 MG, CYCLIC (D1-D21 Q28 D)
     Route: 048
     Dates: start: 20170519

REACTIONS (4)
  - Temperature intolerance [Unknown]
  - Fatigue [Unknown]
  - Weight increased [Unknown]
  - Back pain [Unknown]
